FAERS Safety Report 8950312 (Version 1)
Quarter: 2012Q4

REPORT INFORMATION
  Report Type: Spontaneous
  Country: US (occurrence: None)
  Receive Date: 20121130
  Receipt Date: 20121130
  Transmission Date: 20130627
  Serious: Yes (Disabling)
  Sender: FDA-Public Use
  Company Number: None

PATIENT
  Age: 35 Year
  Sex: Female
  Weight: 65.77 kg

DRUGS (5)
  1. LEVOFLOXACIN 500 MG BICONVEX [Suspect]
     Indication: GASTRIC ULCER
     Dosage: 500 mg twice a day po
     Route: 048
     Dates: start: 20121110, end: 20121116
  2. LEVOFLOXACIN 500 MG BICONVEX [Suspect]
     Indication: DISEASE RECURRENCE
     Dosage: 500 mg twice a day po
     Route: 048
     Dates: start: 20121110, end: 20121116
  3. TINIDIAZOLE [Concomitant]
  4. AMOXICILLIN [Concomitant]
  5. OMEPRAZOLE [Concomitant]

REACTIONS (5)
  - Arthralgia [None]
  - Pain in extremity [None]
  - Mobility decreased [None]
  - Asthenia [None]
  - Arthralgia [None]
